FAERS Safety Report 23632719 (Version 1)
Quarter: 2024Q1

REPORT INFORMATION
  Report Type: Report from Study
  Country: US (occurrence: US)
  Receive Date: 20240314
  Receipt Date: 20240314
  Transmission Date: 20240410
  Serious: Yes (Other)
  Sender: FDA-Public Use
  Company Number: US-ARGENX-2023-ARGX-US004607

PATIENT

DRUGS (5)
  1. VYVGART [Suspect]
     Active Substance: EFGARTIGIMOD ALFA-FCAB
     Indication: Myasthenia gravis
     Dosage: 700 MG, 1/WEEK
     Route: 042
  2. VYVGART [Suspect]
     Active Substance: EFGARTIGIMOD ALFA-FCAB
     Dosage: 700 MG, 1/WEEK
     Route: 042
     Dates: start: 20231212
  3. SODIUM CHLORIDE [Concomitant]
     Active Substance: SODIUM CHLORIDE
     Indication: Product used for unknown indication
     Dosage: 10 ML
     Route: 065
  4. SODIUM CHLORIDE [Concomitant]
     Active Substance: SODIUM CHLORIDE
     Dosage: 100 ML/BAG
     Route: 065
  5. EPINEPHRINE [Concomitant]
     Active Substance: EPINEPHRINE
     Indication: Product used for unknown indication
     Dosage: UNK
     Route: 065

REACTIONS (10)
  - Prostate cancer [Unknown]
  - Dysarthria [Unknown]
  - Fatigue [Unknown]
  - Dyspnoea exertional [Unknown]
  - Eyelid ptosis [Unknown]
  - Dizziness [Unknown]
  - Photophobia [Unknown]
  - Dysstasia [Unknown]
  - Pain in jaw [Not Recovered/Not Resolved]
  - Loss of personal independence in daily activities [Unknown]
